FAERS Safety Report 8272900-6 (Version None)
Quarter: 2012Q2

REPORT INFORMATION
  Report Type: 
  Country: None (occurrence: None)
  Receive Date: 20120411
  Receipt Date: 20120405
  Transmission Date: 20120825
  Serious: Yes (Death, Hospitalization, Other)
  Sender: FDA-Public Use
  Company Number: SE-AMGEN-SWESP2011055945

PATIENT
  Age: 67 Year
  Sex: Male
  Weight: 82 kg

DRUGS (18)
  1. VECTIBIX [Suspect]
     Indication: COLON CANCER
     Dosage: 6 MG/KG, Q2WK
     Route: 042
     Dates: start: 20110124
  2. MOVICOL                            /01625101/ [Concomitant]
     Dosage: 1 UNK, QD
     Route: 048
     Dates: start: 20100601
  3. IRINOTECAN HCL [Concomitant]
     Indication: COLON CANCER
     Dosage: 180 MG/M2, Q2WK
     Dates: start: 20110124
  4. PRIMPERAN TAB [Concomitant]
     Dosage: 10 MG, PRN
     Dates: start: 20100601
  5. LAXOBERAL [Concomitant]
     Indication: CONSTIPATION
     Dosage: UNK UNK, PRN
     Dates: start: 20080122
  6. MINIDERM                           /00021201/ [Concomitant]
     Dosage: 1 UNK, BID
     Dates: start: 20110511
  7. MADOPARK [Concomitant]
     Dosage: 1 DF, TID
     Dates: start: 20090921
  8. MORPHINE [Concomitant]
     Dosage: UNK
     Dates: start: 20100601
  9. LAKTULOS [Concomitant]
     Indication: CONSTIPATION
     Dosage: UNK UNK, PRN
     Dates: start: 20100531
  10. LOPERAMIDE [Concomitant]
     Indication: DIARRHOEA
     Dosage: UNK UNK, PRN
     Dates: start: 20100531
  11. ACETAMINOPHEN [Concomitant]
     Indication: PAIN
     Dosage: 1000 MG, PRN
     Dates: start: 20100531
  12. METRONIDAZOL                       /00012501/ [Concomitant]
     Dosage: 1 UNK, BID
     Dates: start: 20110922
  13. ROZEX                              /00012501/ [Concomitant]
     Indication: ACNE
     Dosage: UNK
     Dates: start: 20111201
  14. ONDANSETRON [Concomitant]
     Indication: NAUSEA
     Dosage: 4 MG, PRN
     Dates: start: 20110124
  15. NOVALUZID [Concomitant]
     Indication: GASTRITIS
     Dosage: UNK UNK, PRN
     Dates: start: 20100531
  16. KLYX [Concomitant]
     Dosage: UNK UNK, PRN
     Dates: start: 20100601
  17. NITROLINGUAL [Concomitant]
     Indication: CHEST PAIN
     Dosage: UNK UNK, PRN
     Dates: start: 20100610
  18. MOLLIPECT [Concomitant]
     Dosage: UNK UNK, PRN
     Dates: start: 20110105

REACTIONS (3)
  - CEREBROVASCULAR ACCIDENT [None]
  - PULMONARY EMBOLISM [None]
  - COLON CANCER [None]
